FAERS Safety Report 17543859 (Version 1)
Quarter: 2020Q1

REPORT INFORMATION
  Report Type: Spontaneous
  Country: IT (occurrence: IT)
  Receive Date: 20200316
  Receipt Date: 20200316
  Transmission Date: 20200409
  Serious: Yes (Other)
  Sender: FDA-Public Use
  Company Number: IT-AMGEN-ITASP2019157359

PATIENT
  Age: 29 Year
  Sex: Female
  Weight: 56 kg

DRUGS (1)
  1. AMGEVITA [Suspect]
     Active Substance: ADALIMUMAB
     Indication: HIDRADENITIS
     Dosage: 40 MILLIGRAM, QWK
     Route: 058
     Dates: start: 20181101, end: 20190911

REACTIONS (3)
  - Hidradenitis [Not Recovered/Not Resolved]
  - Groin abscess [Not Recovered/Not Resolved]
  - Breast abscess [Not Recovered/Not Resolved]

NARRATIVE: CASE EVENT DATE: 20190901
